FAERS Safety Report 15158207 (Version 3)
Quarter: 2018Q3

REPORT INFORMATION
  Report Type: Spontaneous
  Country: US (occurrence: US)
  Receive Date: 20180718
  Receipt Date: 20180724
  Transmission Date: 20181010
  Serious: Yes (Other)
  Sender: FDA-Public Use
  Company Number: US-TEVA-2018-US-926762

PATIENT
  Age: 66 Year
  Sex: Female

DRUGS (1)
  1. ALENDRONATE SODIUM. [Suspect]
     Active Substance: ALENDRONATE SODIUM
     Indication: OSTEOPOROSIS
     Route: 065
     Dates: start: 20180703

REACTIONS (5)
  - Pain in extremity [Unknown]
  - Peripheral swelling [Unknown]
  - Upper limb fracture [Unknown]
  - Musculoskeletal stiffness [Unknown]
  - Lower limb fracture [Unknown]

NARRATIVE: CASE EVENT DATE: 20180712
